FAERS Safety Report 8287507-4 (Version None)
Quarter: 2012Q2

REPORT INFORMATION
  Report Type: 
  Country: None (occurrence: None)
  Receive Date: 20120416
  Receipt Date: 20120406
  Transmission Date: 20120825
  Serious: Yes (Hospitalization, Other)
  Sender: FDA-Public Use
  Company Number: IT-ELI_LILLY_AND_COMPANY-IT201204001910

PATIENT
  Sex: Female

DRUGS (10)
  1. ASPIRIN [Concomitant]
     Dosage: UNK, UNKNOWN
  2. LASIX [Concomitant]
     Dosage: UNK, UNKNOWN
  3. ROCEPHIN [Concomitant]
     Dosage: UNK, UNKNOWN
  4. RAMIPRIL [Concomitant]
     Dosage: UNK, UNKNOWN
  5. ALDACTONE [Concomitant]
     Dosage: UNK, UNKNOWN
  6. METOPROLOL TARTRATE [Concomitant]
     Dosage: UNK, UNKNOWN
  7. EFFIENT [Suspect]
     Dosage: 10 MG, UNK
     Dates: end: 20120406
  8. ATORVASTATIN CALCIUM [Concomitant]
     Dosage: UNK, UNKNOWN
  9. PANTOPRAZOLE SODIUM [Concomitant]
     Dosage: UNK, UNKNOWN
  10. EFFIENT [Suspect]
     Indication: ACUTE MYOCARDIAL INFARCTION
     Dosage: 60 MG, LOADING DOSE
     Route: 048
     Dates: start: 20120325

REACTIONS (1)
  - ERYTHEMA [None]
